FAERS Safety Report 17736545 (Version 1)
Quarter: 2020Q2

REPORT INFORMATION
  Report Type: Spontaneous
  Country: US (occurrence: US)
  Receive Date: 20200501
  Receipt Date: 20200501
  Transmission Date: 20200714
  Serious: No
  Sender: FDA-Public Use
  Company Number: US-ELI_LILLY_AND_COMPANY-US202004002077

PATIENT
  Age: 27 Year
  Sex: Female

DRUGS (3)
  1. EMGALITY [Suspect]
     Active Substance: GALCANEZUMAB-GNLM
     Indication: MIGRAINE PROPHYLAXIS
     Dosage: 240 MG, UNKNOWN
     Route: 058
     Dates: start: 20200310
  2. EMGALITY [Suspect]
     Active Substance: GALCANEZUMAB-GNLM
     Indication: MIGRAINE PROPHYLAXIS
     Dosage: 240 MG, UNKNOWN
     Route: 058
     Dates: start: 20200310
  3. UBROGEPANT [Concomitant]
     Active Substance: UBROGEPANT
     Indication: MIGRAINE
     Dosage: 100 MG, UNKNOWN
     Route: 065

REACTIONS (2)
  - Migraine [Unknown]
  - Photophobia [Unknown]

NARRATIVE: CASE EVENT DATE: 20200403
